FAERS Safety Report 7334880-7 (Version None)
Quarter: 2011Q1

REPORT INFORMATION
  Report Type: 
  Country: None (occurrence: None)
  Receive Date: 20110307
  Receipt Date: 20110222
  Transmission Date: 20110831
  Serious: Yes (Death)
  Sender: FDA-Public Use
  Company Number: US-CELGENEUS-163-21880-11021826

PATIENT
  Sex: Male
  Weight: 68.1 kg

DRUGS (4)
  1. RITUXIMAB [Suspect]
     Indication: MANTLE CELL LYMPHOMA STAGE IV
     Dosage: 705
     Route: 051
     Dates: start: 20110128, end: 20110204
  2. REVLIMID [Suspect]
     Indication: MANTLE CELL LYMPHOMA STAGE IV
     Dosage: 10 MILLIGRAM
     Route: 048
     Dates: start: 20110128, end: 20110101
  3. BORTEZOMIB [Suspect]
     Indication: MANTLE CELL LYMPHOMA STAGE IV
     Dosage: 2.4
     Route: 051
     Dates: start: 20110128, end: 20110207
  4. DOPAMINE [Concomitant]
     Route: 065
     Dates: start: 20110201

REACTIONS (1)
  - SEPTIC SHOCK [None]
